FAERS Safety Report 10152980 (Version 2)
Quarter: 2014Q2

REPORT INFORMATION
  Report Type: Spontaneous
  Country: FI (occurrence: FI)
  Receive Date: 20140505
  Receipt Date: 20140505
  Transmission Date: 20141212
  Serious: Yes (Other)
  Sender: FDA-Public Use
  Company Number: FI-ACTAVIS-2014-08583

PATIENT
  Age: 70 Year
  Sex: Female

DRUGS (2)
  1. DOCETAXEL ACTAVIS [Suspect]
     Indication: CERVIX CARCINOMA
     Dosage: 75 MG, DAILY
     Route: 042
     Dates: start: 20140321, end: 20140321
  2. GEMZAR [Concomitant]
     Indication: NEOPLASM MALIGNANT
     Dosage: 1600 MG, UNK
     Route: 042
     Dates: start: 20140321, end: 20140321

REACTIONS (4)
  - Infusion site erythema [Recovering/Resolving]
  - Infusion site pruritus [Recovering/Resolving]
  - Infusion site warmth [Recovering/Resolving]
  - Pruritus generalised [Recovering/Resolving]
